FAERS Safety Report 12495737 (Version 1)
Quarter: 2016Q2

REPORT INFORMATION
  Report Type: Other
  Country: DE (occurrence: DE)
  Receive Date: 20160624
  Receipt Date: 20160624
  Transmission Date: 20160815
  Serious: Yes (Other)
  Sender: FDA-Public Use
  Company Number: DE-CIPLA LTD.-2016DE08081

PATIENT

DRUGS (3)
  1. LAMOTRIGINE. [Suspect]
     Active Substance: LAMOTRIGINE
     Indication: BIPOLAR DISORDER
     Dosage: UNK
     Route: 064
  2. QUETIAPINE. [Suspect]
     Active Substance: QUETIAPINE
     Indication: BIPOLAR DISORDER
     Dosage: UNK
     Route: 064
  3. QUILONIUM RETARD [Suspect]
     Active Substance: LITHIUM CARBONATE
     Indication: BIPOLAR DISORDER
     Dosage: UNK
     Route: 064

REACTIONS (6)
  - Drug withdrawal syndrome neonatal [Unknown]
  - Patent ductus arteriosus [Unknown]
  - Selective eating disorder [Unknown]
  - Foetal exposure during pregnancy [None]
  - Cardiac disorder [Unknown]
  - Infantile vomiting [Unknown]

NARRATIVE: CASE EVENT DATE: 20090308
